FAERS Safety Report 16718020 (Version 2)
Quarter: 2019Q4

REPORT INFORMATION
  Report Type: Spontaneous
  Country: DE (occurrence: DE)
  Receive Date: 20190819
  Receipt Date: 20191015
  Transmission Date: 20200122
  Serious: Yes (Other)
  Sender: FDA-Public Use
  Company Number: PHHY2019DE188402

PATIENT
  Age: 46 Year
  Sex: Female
  Weight: 83 kg

DRUGS (6)
  1. COSENTYX [Suspect]
     Active Substance: SECUKINUMAB
     Indication: PSORIATIC ARTHROPATHY
     Dosage: UNK
     Route: 058
     Dates: start: 20190515
  2. COSENTYX [Suspect]
     Active Substance: SECUKINUMAB
     Dosage: UNK
     Route: 058
     Dates: start: 20190529
  3. COSENTYX [Suspect]
     Active Substance: SECUKINUMAB
     Dosage: UNK
     Route: 058
     Dates: start: 20190605
  4. COSENTYX [Suspect]
     Active Substance: SECUKINUMAB
     Dosage: UNK
     Route: 058
     Dates: start: 20190612
  5. COSENTYX [Suspect]
     Active Substance: SECUKINUMAB
     Dosage: UNK
     Route: 058
     Dates: start: 20190522
  6. COSENTYX [Suspect]
     Active Substance: SECUKINUMAB
     Dosage: UNK
     Route: 058
     Dates: start: 20190714

REACTIONS (14)
  - Dysphonia [Recovering/Resolving]
  - Abdominal pain [Unknown]
  - Angioedema [Recovering/Resolving]
  - Hypersensitivity [Recovering/Resolving]
  - Flatulence [Unknown]
  - Nausea [Unknown]
  - Fatigue [Unknown]
  - Dolichocolon [Not Recovered/Not Resolved]
  - Oropharyngeal pain [Recovering/Resolving]
  - Constipation [Not Recovered/Not Resolved]
  - Vision blurred [Recovering/Resolving]
  - Gastrointestinal motility disorder [Unknown]
  - Dyspnoea [Recovering/Resolving]
  - Oral papule [Recovering/Resolving]

NARRATIVE: CASE EVENT DATE: 2019
